FAERS Safety Report 10211118 (Version 1)
Quarter: 2014Q2

REPORT INFORMATION
  Report Type: Spontaneous
  Country: US (occurrence: None)
  Receive Date: 20140530
  Receipt Date: 20140530
  Transmission Date: 20141212
  Serious: Yes (Hospitalization)
  Sender: FDA-Public Use
  Company Number: None

PATIENT
  Sex: Male

DRUGS (2)
  1. FENOFIBRATE 145MG TAB [Suspect]
     Indication: HYPERLIPIDAEMIA
     Route: 048
     Dates: start: 20140210, end: 20140512
  2. ATORVASTATIN 20MG TAB [Suspect]
     Route: 048
     Dates: start: 20140129, end: 20140512

REACTIONS (1)
  - Hepatic failure [None]
